FAERS Safety Report 24592592 (Version 1)
Quarter: 2024Q4

REPORT INFORMATION
  Report Type: Spontaneous
  Country: IT (occurrence: IT)
  Receive Date: 20241108
  Receipt Date: 20241108
  Transmission Date: 20250115
  Serious: Yes (Death, Life-Threatening, Hospitalization)
  Sender: B BRAUN
  Company Number: IT-B.Braun Medical Inc.-2164662

PATIENT
  Age: 60 Year
  Sex: Male
  Weight: 70 kg

DRUGS (3)
  1. POTASSIUM CHLORIDE [Suspect]
     Active Substance: POTASSIUM CHLORIDE
     Dates: start: 20240625, end: 20240627
  2. FUROSEMIDE\SPIRONOLACTONE [Suspect]
     Active Substance: FUROSEMIDE\SPIRONOLACTONE
  3. BREVA [Suspect]
     Active Substance: ALBUTEROL\IPRATROPIUM

REACTIONS (1)
  - Dermatitis bullous [Fatal]
